FAERS Safety Report 11945228 (Version 1)
Quarter: 2016Q1

REPORT INFORMATION
  Report Type: Report from Study
  Country: US (occurrence: US)
  Receive Date: 20160125
  Receipt Date: 20160125
  Transmission Date: 20160526
  Serious: Yes (Hospitalization)
  Sender: FDA-Public Use
  Company Number: US-JNJFOC-20160117124

PATIENT
  Age: 69 Year
  Sex: Female
  Weight: 57 kg

DRUGS (4)
  1. RITUXIMAB [Suspect]
     Active Substance: RITUXIMAB
     Indication: CHRONIC LYMPHOCYTIC LEUKAEMIA
     Dosage: DAYS 1, 8, 15, 22
     Route: 042
     Dates: start: 20140703, end: 20141023
  2. RITUXIMAB [Suspect]
     Active Substance: RITUXIMAB
     Indication: CHRONIC LYMPHOCYTIC LEUKAEMIA
     Dosage: CYCLE 2: DAYS 1, 8, 15 AND 22
     Route: 042
     Dates: start: 20140703
  3. IBRUTINIB [Suspect]
     Active Substance: IBRUTINIB
     Indication: CHRONIC LYMPHOCYTIC LEUKAEMIA
     Dosage: CYCLE 1 +
     Route: 048
     Dates: start: 20150911, end: 20151122
  4. IBRUTINIB [Suspect]
     Active Substance: IBRUTINIB
     Indication: CHRONIC LYMPHOCYTIC LEUKAEMIA
     Dosage: CYCLE 1+
     Route: 048
     Dates: start: 20151208

REACTIONS (1)
  - Small intestinal obstruction [Recovered/Resolved]

NARRATIVE: CASE EVENT DATE: 20151122
